FAERS Safety Report 14208158 (Version 1)
Quarter: 2017Q4

REPORT INFORMATION
  Report Type: Spontaneous
  Country: US (occurrence: US)
  Receive Date: 20171121
  Receipt Date: 20171121
  Transmission Date: 20180321
  Serious: No
  Sender: FDA-Public Use
  Company Number: US-BAYER-2017-224743

PATIENT
  Age: 5 Year
  Sex: Female

DRUGS (3)
  1. MIRALAX [Suspect]
     Active Substance: POLYETHYLENE GLYCOL 3350
     Indication: CONSTIPATION
     Dosage: 0.5 DF, QD
     Route: 048
     Dates: start: 2016
  2. MIRALAX [Suspect]
     Active Substance: POLYETHYLENE GLYCOL 3350
     Indication: GASTROINTESTINAL DISORDER
     Dosage: 1 DF, QD
     Route: 048
     Dates: start: 2016
  3. BENEFIBER FIBER SUPPLEMENT [Concomitant]
     Dosage: UNK

REACTIONS (6)
  - Poor quality drug administered [Unknown]
  - Off label use [None]
  - Product taste abnormal [Unknown]
  - Product odour abnormal [Unknown]
  - Product use issue [Unknown]
  - Product use in unapproved indication [None]

NARRATIVE: CASE EVENT DATE: 201711
